FAERS Safety Report 25587820 (Version 2)
Quarter: 2025Q3

REPORT INFORMATION
  Report Type: Report from Study
  Country: MX (occurrence: MX)
  Receive Date: 20250721
  Receipt Date: 20250908
  Transmission Date: 20251020
  Serious: Yes (Other)
  Sender: DAIICHI
  Company Number: MX-AstraZeneca-CH-00909351A

PATIENT
  Age: 65 Year
  Sex: Female
  Weight: 68 kg

DRUGS (6)
  1. ENHERTU [Suspect]
     Active Substance: FAM-TRASTUZUMAB DERUXTECAN-NXKI
     Indication: Human epidermal growth factor receptor positive
     Dosage: 100 ML, ONCE EVERY 3 WK
     Route: 065
     Dates: start: 202501
  2. ENHERTU [Suspect]
     Active Substance: FAM-TRASTUZUMAB DERUXTECAN-NXKI
     Dosage: UNK UNK, ONCE EVERY 3 WK
     Route: 042
     Dates: start: 20250611
  3. OMEPRAZOLE [Concomitant]
     Active Substance: OMEPRAZOLE
     Indication: Product used for unknown indication
     Dosage: 20 MG, EVERY MORNING
     Route: 065
  4. IRON [Concomitant]
     Active Substance: IRON
     Indication: Immune system disorder
     Route: 065
  5. ERGOCALCIFEROL [Concomitant]
     Active Substance: ERGOCALCIFEROL
     Indication: Product used for unknown indication
     Route: 065
  6. PREGABALIN [Concomitant]
     Active Substance: PREGABALIN
     Indication: Neuropathy peripheral
     Route: 065

REACTIONS (9)
  - Thrombosis [Unknown]
  - Fatigue [Recovered/Resolved]
  - Abdominal discomfort [Recovered/Resolved]
  - COVID-19 [Unknown]
  - Diarrhoea [Recovered/Resolved]
  - Immune system disorder [Unknown]
  - Electric shock sensation [Unknown]
  - Hypersomnia [Recovered/Resolved]
  - Treatment delayed [Unknown]

NARRATIVE: CASE EVENT DATE: 20250501
